FAERS Safety Report 8236545-6 (Version None)
Quarter: 2012Q1

REPORT INFORMATION
  Report Type: 
  Country: None (occurrence: None)
  Receive Date: 20120327
  Receipt Date: 20120319
  Transmission Date: 20120608
  Serious: Yes (Hospitalization)
  Sender: FDA-Public Use
  Company Number: US-BAYER-2012-017289

PATIENT
  Age: 51 Year
  Sex: Male
  Weight: 83 kg

DRUGS (10)
  1. FLUOXETINE [Concomitant]
     Dosage: 60 MG, QD
     Route: 048
  2. LISINOPRIL HYDROCHLORTHIAZID [Concomitant]
     Dosage: 1 DF, QD (20-25 MG/TAB)
  3. LASIX [Concomitant]
     Dosage: 20 MG, QD
     Route: 048
  4. LOVENOX [Concomitant]
     Indication: PORTAL VEIN THROMBOSIS
     Dosage: 1 ML, QD (100 MG/ML,SUB-Q SYRINGE)
  5. ALBUTEROL [Concomitant]
     Dosage: 2 PUFF(S), QID, AS NEEDED
  6. NEXAVAR [Suspect]
     Indication: HEPATIC NEOPLASM MALIGNANT NON-RESECTABLE
     Dosage: 200 MG, BID
     Route: 048
     Dates: start: 20111229
  7. ALL OTHER THERAPEUTIC PRODUCTS [Concomitant]
     Dosage: 20 G, QD
     Route: 048
  8. POTASSIUM CHLORIDE [Concomitant]
     Dosage: 20 MEQ/TAB, 2 TABLETS/DAY
     Route: 048
  9. ZOLPIDEM TARTRATE [Concomitant]
     Dosage: 5 MG, QD, AT BEDTIME AS NEEDED
     Route: 048
  10. NYSTATIN [Concomitant]
     Dosage: 5 ML, QID (100.000 UNIT/ML, SUSP.)
     Route: 048

REACTIONS (4)
  - NAUSEA [None]
  - ABDOMINAL PAIN [None]
  - OEDEMA PERIPHERAL [None]
  - LABORATORY TEST ABNORMAL [None]
